FAERS Safety Report 11072852 (Version 2)
Quarter: 2015Q2

REPORT INFORMATION
  Report Type: Spontaneous
  Country: US (occurrence: US)
  Receive Date: 20150428
  Receipt Date: 20150504
  Transmission Date: 20150821
  Serious: No
  Sender: FDA-Public Use
  Company Number: US-PFIZER INC-2015140532

PATIENT
  Age: 63 Year
  Sex: Female

DRUGS (1)
  1. NITROSTAT [Suspect]
     Active Substance: NITROGLYCERIN
     Indication: CHEST PAIN
     Dosage: 0.4 MG TABLET, ONE TABLET UNDER TONGUE EVERY 5 MINUTES AS NEEDED
     Route: 048

REACTIONS (1)
  - Drug ineffective [Unknown]
